FAERS Safety Report 24418057 (Version 1)
Quarter: 2024Q4

REPORT INFORMATION
  Report Type: Spontaneous
  Country: US (occurrence: US)
  Receive Date: 20241009
  Receipt Date: 20241009
  Transmission Date: 20250114
  Serious: No
  Sender: AMGEN
  Company Number: US-AMGEN-USASP2024196534

PATIENT
  Age: 58 Year
  Sex: Male

DRUGS (1)
  1. PREDNISONE [Suspect]
     Active Substance: PREDNISONE
     Indication: Age-related macular degeneration
     Dosage: 40 MILLIGRAM
     Route: 048

REACTIONS (2)
  - Maculopathy [Unknown]
  - Off label use [Unknown]
